FAERS Safety Report 23041641 (Version 3)
Quarter: 2025Q1

REPORT INFORMATION
  Report Type: Spontaneous
  Country: US (occurrence: US)
  Receive Date: 20231007
  Receipt Date: 20250319
  Transmission Date: 20250408
  Serious: No
  Sender: MACLEODS
  Company Number: None

PATIENT

DRUGS (1)
  1. OLANZAPINE [Suspect]
     Active Substance: OLANZAPINE
     Indication: Product used for unknown indication
     Route: 065

REACTIONS (4)
  - Cortisol increased [Unknown]
  - Menstruation delayed [Unknown]
  - Product substitution issue [Unknown]
  - Blood prolactin increased [Unknown]
